FAERS Safety Report 9011205 (Version 2)
Quarter: 2013Q3

REPORT INFORMATION
  Report Type: Spontaneous
  Country: BR (occurrence: BR)
  Receive Date: 20130109
  Receipt Date: 20130809
  Transmission Date: 20140515
  Serious: Yes (Death, Hospitalization, Other)
  Sender: FDA-Public Use
  Company Number: BR-ABBOTT-13P-020-1033575-00

PATIENT
  Age: 65 Year
  Sex: Male

DRUGS (7)
  1. HUMIRA [Suspect]
     Indication: RHEUMATOID ARTHRITIS
     Dates: start: 20111130
  2. HUMIRA [Suspect]
     Dates: start: 201208
  3. OMEPRAZOLE [Concomitant]
     Indication: GASTRIC DISORDER
  4. ATENOLOL [Concomitant]
     Indication: HYPERTENSION
  5. PREDNISONE [Concomitant]
     Indication: PAIN
  6. DICLOFENAC SODIUM [Concomitant]
     Indication: PAIN
  7. UNKNOWN MEDICATION [Concomitant]
     Indication: AGITATION

REACTIONS (21)
  - Death [Fatal]
  - Infection [Unknown]
  - Renal failure [Unknown]
  - Pneumonia [Unknown]
  - Pyrexia [Unknown]
  - Vomiting [Unknown]
  - Dyspnoea [Unknown]
  - Syncope [Unknown]
  - Erysipelas [Unknown]
  - Varicose vein [Unknown]
  - Eschar [Unknown]
  - Eschar [Unknown]
  - Weight decreased [Unknown]
  - Decreased appetite [Unknown]
  - Urine output decreased [Unknown]
  - Faecal volume decreased [Unknown]
  - Pulmonary oedema [Unknown]
  - Agitation [Unknown]
  - Malaise [Unknown]
  - Bedridden [Unknown]
  - Diarrhoea [Unknown]
